FAERS Safety Report 14266674 (Version 2)
Quarter: 2017Q4

REPORT INFORMATION
  Report Type: Report from Study
  Country: FR (occurrence: FR)
  Receive Date: 20171211
  Receipt Date: 20171220
  Transmission Date: 20180321
  Serious: Yes (Other)
  Sender: FDA-Public Use
  Company Number: FR-ROCHE-2033569

PATIENT
  Age: 73 Year
  Sex: Female
  Weight: 47 kg

DRUGS (2)
  1. OBINUTUZUMAB. [Suspect]
     Active Substance: OBINUTUZUMAB
     Indication: DIFFUSE LARGE B-CELL LYMPHOMA
     Dosage: LAST DOSE: 23/AUG/2017?ON D8, D15 AND D22OF CYCLE 1 AND ON D1 OF CYCLES 2 TO 6
     Route: 042
     Dates: start: 20150610
  2. LENALIDOMIDE [Suspect]
     Active Substance: LENALIDOMIDE
     Indication: DIFFUSE LARGE B-CELL LYMPHOMA
     Dosage: LAST DOSE: 10/NOV/2016
     Route: 048
     Dates: start: 20150610

REACTIONS (1)
  - Malignant melanoma [Recovered/Resolved]

NARRATIVE: CASE EVENT DATE: 20170914
